FAERS Safety Report 7417996-6 (Version None)
Quarter: 2011Q2

REPORT INFORMATION
  Report Type: 
  Country: None (occurrence: None)
  Receive Date: 20110412
  Receipt Date: 20110412
  Transmission Date: 20111010
  Serious: Yes (Other)
  Sender: FDA-Public Use
  Company Number: None

PATIENT
  Age: 45 Year
  Sex: Female
  Weight: 81.6475 kg

DRUGS (3)
  1. FINASTERIDE [Suspect]
  2. CITALOPRAM HYDROBROMIDE [Suspect]
     Indication: DEPRESSION
     Dosage: 10MG DAILY PO
     Route: 048
     Dates: start: 20100301, end: 20110411
  3. TAMOXIFEN CITRATE [Suspect]

REACTIONS (3)
  - WRONG DRUG ADMINISTERED [None]
  - PRODUCT LABEL ON WRONG PRODUCT [None]
  - MENORRHAGIA [None]
